FAERS Safety Report 7360994-1 (Version None)
Quarter: 2011Q1

REPORT INFORMATION
  Report Type: 
  Country: None (occurrence: None)
  Receive Date: 20110318
  Receipt Date: 20110310
  Transmission Date: 20110831
  Serious: Yes (Hospitalization)
  Sender: FDA-Public Use
  Company Number: US-ROCHE-692183

PATIENT
  Sex: Male
  Weight: 76 kg

DRUGS (17)
  1. MYCOPHENOLATE MOFETIL [Suspect]
     Route: 065
     Dates: start: 20100306, end: 20100423
  2. ASPIRIN [Concomitant]
     Dates: start: 20090430, end: 20100423
  3. VALSARTAN [Concomitant]
     Dates: start: 20081118, end: 20100225
  4. MYCOPHENOLATE MOFETIL [Suspect]
     Dosage: TEMPORARILY STOPPED
     Route: 065
     Dates: start: 20080603, end: 20100224
  5. TAMSULOSIN HYDROCHLORIDE [Concomitant]
     Dates: start: 20080527, end: 20100423
  6. PLAVIX [Concomitant]
     Dates: start: 20100305, end: 20100423
  7. MUCINEX [Concomitant]
     Dates: start: 20100224, end: 20100423
  8. LASIX [Concomitant]
     Dates: start: 20081017, end: 20100225
  9. CP-690550 [Suspect]
     Route: 048
     Dates: start: 20080523
  10. PROTONIX [Concomitant]
     Dates: start: 20080524, end: 20100423
  11. METOPROLOL SUCCINATE [Concomitant]
     Dosage: START DATE: 2010
     Dates: end: 20100423
  12. LEVAQUIN [Concomitant]
     Dates: start: 20100305, end: 20100329
  13. MYCOPHENOLATE MOFETIL [Suspect]
     Route: 065
     Dates: start: 20100225, end: 20100305
  14. PREDNISONE [Suspect]
     Route: 065
     Dates: start: 20080617, end: 20100406
  15. PREDNISONE [Suspect]
     Route: 065
     Dates: start: 20100409, end: 20100423
  16. LIPITOR [Concomitant]
     Dates: start: 20080909, end: 20100423
  17. HUMALOG [Concomitant]
     Dates: start: 20080525, end: 20100423

REACTIONS (7)
  - LOCALISED INFECTION [None]
  - CELLULITIS [None]
  - DIABETIC KETOACIDOSIS [None]
  - CORONARY ARTERY DISEASE [None]
  - PERIPHERAL ISCHAEMIA [None]
  - STAPHYLOCOCCAL INFECTION [None]
  - STAPHYLOCOCCAL SEPSIS [None]
